FAERS Safety Report 4328952-9 (Version None)
Quarter: 2004Q1

REPORT INFORMATION
  Report Type: 
  Country: None (occurrence: None)
  Receive Date: 20040331
  Receipt Date: 20040331
  Transmission Date: 20041129
  Serious: No
  Sender: FDA-Public Use
  Company Number: None

PATIENT
  Age: 78 Year
  Sex: Female

DRUGS (2)
  1. OXYCONTIN [Suspect]
     Indication: LUMBAR SPINAL STENOSIS
     Dosage: 10 MG PO Q12H
     Route: 048
     Dates: start: 20040322, end: 20040323
  2. OXYCONTIN [Suspect]
     Indication: PAIN
     Dosage: 10 MG PO Q12H
     Route: 048
     Dates: start: 20040322, end: 20040323

REACTIONS (3)
  - DRUG HYPERSENSITIVITY [None]
  - DYSPNOEA [None]
  - PRURITUS [None]
